FAERS Safety Report 4317408-5 (Version None)
Quarter: 2004Q1

REPORT INFORMATION
  Report Type: 
  Country: None (occurrence: None)
  Receive Date: 20040312
  Receipt Date: 20040304
  Transmission Date: 20041129
  Serious: Yes (Hospitalization)
  Sender: FDA-Public Use
  Company Number: 2004199692JP

PATIENT
  Age: 79 Year
  Sex: Male

DRUGS (10)
  1. CABERGOLINE [Suspect]
     Indication: PARKINSON'S DISEASE
     Dosage: UNK, ORAL
     Route: 048
     Dates: start: 20031101, end: 20031218
  2. DIOVAN [Concomitant]
  3. LANIRAPID (METILDIGOXIN) [Concomitant]
  4. SELEGILINE HYDROCHLORIDE [Concomitant]
  5. LASIX [Concomitant]
  6. TORSEMIDE [Concomitant]
  7. PERMAX [Concomitant]
  8. SYMMETREL [Concomitant]
  9. NEO DOPASTON [Concomitant]
  10. SELBEX (TEPRENONE) [Concomitant]

REACTIONS (7)
  - CARDIAC FAILURE [None]
  - CORONARY ARTERY SURGERY [None]
  - GASTRIC ULCER [None]
  - HAEMATEMESIS [None]
  - HAEMOPTYSIS [None]
  - INTERSTITIAL LUNG DISEASE [None]
  - MITRAL VALVE REPLACEMENT [None]
